FAERS Safety Report 5366328-6 (Version None)
Quarter: 2007Q2

REPORT INFORMATION
  Report Type: 
  Country: None (occurrence: None)
  Receive Date: 20070620
  Receipt Date: 20070620
  Transmission Date: 20071010
  Serious: Yes (Hospitalization)
  Sender: FDA-Public Use
  Company Number: None

PATIENT
  Age: 74 Year
  Sex: Male

DRUGS (2)
  1. SEPTRA [Suspect]
     Indication: CELLULITIS
     Dosage: 1 TAB BID PO
     Route: 048
     Dates: start: 20070601, end: 20070609
  2. SEPTRA [Suspect]
     Indication: SKIN INFECTION
     Dosage: 1 TAB BID PO
     Route: 048
     Dates: start: 20070601, end: 20070609

REACTIONS (5)
  - ABASIA [None]
  - DYSSTASIA [None]
  - HYPERKALAEMIA [None]
  - MUSCULAR WEAKNESS [None]
  - MYALGIA [None]
